FAERS Safety Report 5826091-9 (Version None)
Quarter: 2008Q3

REPORT INFORMATION
  Report Type: 
  Country: None (occurrence: None)
  Receive Date: 20080723
  Receipt Date: 20080710
  Transmission Date: 20090109
  Serious: Yes (Hospitalization)
  Sender: FDA-Public Use
  Company Number: 2008AL003863

PATIENT

DRUGS (1)
  1. DIGOXIN [Suspect]

REACTIONS (4)
  - CARDIAC FAILURE [None]
  - DIZZINESS [None]
  - GASTRIC HAEMORRHAGE [None]
  - NAUSEA [None]
